FAERS Safety Report 4379196-6 (Version None)
Quarter: 2004Q2

REPORT INFORMATION
  Report Type: 
  Country: None (occurrence: None)
  Receive Date: 20040610
  Receipt Date: 20040525
  Transmission Date: 20050107
  Serious: Yes (Hospitalization)
  Sender: FDA-Public Use
  Company Number: 193480

PATIENT
  Age: 38 Year
  Sex: Male

DRUGS (2)
  1. AVONEX ^BIOGEN^ [Suspect]
     Indication: MULTIPLE SCLEROSIS
     Dosage: 30 MCG QW IM
     Route: 030
     Dates: start: 20030101, end: 20030801
  2. AVONEX    BIOGEN [Suspect]
     Indication: MULTIPLE SCLEROSIS
     Dosage: 30  MCG QW IM
     Route: 030
     Dates: start: 20030825, end: 20040226

REACTIONS (1)
  - MULTIPLE SCLEROSIS [None]
